FAERS Safety Report 18254420 (Version 3)
Quarter: 2020Q4

REPORT INFORMATION
  Report Type: Spontaneous
  Country: GB (occurrence: GB)
  Receive Date: 20200911
  Receipt Date: 20201016
  Transmission Date: 20210113
  Serious: No
  Sender: FDA-Public Use
  Company Number: GB-009507513-2009GBR003631

PATIENT
  Sex: Female

DRUGS (2)
  1. LOSARTAN POTASSIUM. [Suspect]
     Active Substance: LOSARTAN POTASSIUM
     Indication: HYPERTENSION
     Dosage: UNK
     Route: 065
  2. LOSARTAN POTASSIUM. [Suspect]
     Active Substance: LOSARTAN POTASSIUM
     Dosage: UNK
     Route: 048

REACTIONS (7)
  - Malaise [Unknown]
  - Drug intolerance [Unknown]
  - Blood pressure increased [Unknown]
  - Product substitution issue [Unknown]
  - Drug ineffective [Unknown]
  - Headache [Unknown]
  - Illness [Unknown]
